FAERS Safety Report 6871245-6 (Version None)
Quarter: 2010Q3

REPORT INFORMATION
  Report Type: 
  Country: None (occurrence: None)
  Receive Date: 20100723
  Receipt Date: 20100712
  Transmission Date: 20110219
  Serious: Yes (Other)
  Sender: FDA-Public Use
  Company Number: AU-JNJFOC-20080707065

PATIENT
  Sex: Female
  Weight: 55 kg

DRUGS (4)
  1. REMICADE [Suspect]
     Indication: ANKYLOSING SPONDYLITIS
     Dosage: WEEKS 0, 2, AND 6, THEN EVERY 6 WEEKS
     Route: 042
  2. REMICADE [Suspect]
     Dosage: A TOTAL OF 4 INFUSIONS WERE ADMINISTERED
     Route: 042
  3. METHOTREXATE [Concomitant]
  4. CELEBREX [Concomitant]

REACTIONS (5)
  - IRIDOCYCLITIS [None]
  - PERITONEAL TUBERCULOSIS [None]
  - PSORIATIC ARTHROPATHY [None]
  - RASH MACULO-PAPULAR [None]
  - RETINAL VASCULITIS [None]
